FAERS Safety Report 8103609-7 (Version None)
Quarter: 2012Q1

REPORT INFORMATION
  Report Type: 
  Country: None (occurrence: None)
  Receive Date: 20120201
  Receipt Date: 20120117
  Transmission Date: 20120608
  Serious: Yes (Other)
  Sender: FDA-Public Use
  Company Number: DE-JUTA GMBH-2012-00579

PATIENT
  Sex: Male

DRUGS (1)
  1. OMEPRAZOLE [Suspect]
     Indication: PRODUCT USED FOR UNKNOWN INDICATION
     Dosage: UNK
     Route: 048
     Dates: start: 20120115

REACTIONS (1)
  - FAECES DISCOLOURED [None]
